FAERS Safety Report 4579582-5 (Version None)
Quarter: 2005Q1

REPORT INFORMATION
  Report Type: 
  Country: None (occurrence: None)
  Receive Date: 20050210
  Receipt Date: 20050126
  Transmission Date: 20050727
  Serious: Yes (Death, Hospitalization)
  Sender: FDA-Public Use
  Company Number: 2004AL000876

PATIENT
  Age: 29 Year
  Sex: Female

DRUGS (9)
  1. TRAZODONE HCL [Suspect]
     Dosage: PO
     Route: 048
  2. ACETAMINOPHEN AND HYDROCODONE BITARTRATE [Suspect]
     Dosage: PO
     Route: 048
  3. RISPERIDONE [Concomitant]
  4. DIPHENHYDRAMINE/ AND METABOLITES [Concomitant]
  5. DOXYLAMINE [Concomitant]
  6. DEXTROMETHORPHAN HYDROBROMIDE [Concomitant]
  7. DIHYDROCODEINE [Concomitant]
  8. PROPOXPHENE/ AND METABOLITES [Concomitant]
  9. UNSPECIFIED BENZODIAZEPINE [Concomitant]

REACTIONS (5)
  - BRAIN DEATH [None]
  - COMA [None]
  - DRUG TOXICITY [None]
  - INTENTIONAL MISUSE [None]
  - RESPIRATORY RATE DECREASED [None]
